FAERS Safety Report 6791411 (Version 2)
Quarter: 2016Q1

REPORT INFORMATION
  Report Type: Report from Study
  Country: US (occurrence: US)
  Receive Date: 20081020
  Receipt Date: 20160219
  Transmission Date: 20160526
  Serious: Yes (Other)
  Sender: FDA-Public Use
  Company Number: PHHO2008US12103

PATIENT
  Sex: Female
  Weight: 70 kg

DRUGS (3)
  1. CYTOSINE ARABINOSIDE [Suspect]
     Active Substance: CYTARABINE
     Indication: PRODUCT USED FOR UNKNOWN INDICATION
     Dosage: UNK
     Route: 065
     Dates: start: 20070206
  2. TAXOL [Suspect]
     Active Substance: PACLITAXEL
     Indication: BREAST CANCER
     Dosage: UNK
     Route: 065
     Dates: start: 20070206
  3. ZOLEDRONATE [Suspect]
     Active Substance: ZOLEDRONIC ACID
     Indication: BREAST CANCER
     Dosage: 4 MG, UNK
     Route: 042
     Dates: start: 20070206, end: 20080328

REACTIONS (10)
  - Osteonecrosis of jaw [Not Recovered/Not Resolved]
  - Insomnia [Not Recovered/Not Resolved]
  - Exostosis of jaw [Not Recovered/Not Resolved]
  - Neuralgia [Not Recovered/Not Resolved]
  - Toothache [Not Recovered/Not Resolved]
  - Loose tooth [Not Recovered/Not Resolved]
  - Hypoaesthesia [Not Recovered/Not Resolved]
  - Pain in jaw [Not Recovered/Not Resolved]
  - Gingival abscess [Not Recovered/Not Resolved]
  - Tenderness [Not Recovered/Not Resolved]

NARRATIVE: CASE EVENT DATE: 200702
